FAERS Safety Report 21278816 (Version 1)
Quarter: 2022Q3

REPORT INFORMATION
  Report Type: Spontaneous
  Country: GB (occurrence: GB)
  Receive Date: 20220901
  Receipt Date: 20220901
  Transmission Date: 20221026
  Serious: Yes (Disabling, Other)
  Sender: FDA-Public Use
  Company Number: GB-MHRA-MED-202208191637366800-SLDPB

PATIENT
  Age: 34 Year
  Sex: Male
  Weight: 60 kg

DRUGS (4)
  1. RISPERIDONE [Suspect]
     Active Substance: RISPERIDONE
     Indication: Autism spectrum disorder
     Dosage: 0.5 MILLIGRAM
     Route: 065
  2. ACYCLOVIR [Concomitant]
     Active Substance: ACYCLOVIR
     Indication: Oral herpes
     Route: 065
  3. HYDROCORTISONE\MICONAZOLE NITRATE [Concomitant]
     Active Substance: HYDROCORTISONE\MICONAZOLE NITRATE
     Indication: Adverse drug reaction
     Route: 065
  4. Fucidin h [Concomitant]
     Indication: Product used for unknown indication
     Route: 065

REACTIONS (2)
  - Medication error [Unknown]
  - Angular cheilitis [Recovering/Resolving]
